FAERS Safety Report 6244456-0 (Version None)
Quarter: 2009Q2

REPORT INFORMATION
  Report Type: 
  Country: None (occurrence: None)
  Receive Date: 20090623
  Receipt Date: 20090623
  Transmission Date: 20091009
  Serious: Yes (Hospitalization)
  Sender: FDA-Public Use
  Company Number: None

PATIENT
  Sex: Female
  Weight: 22.8 kg

DRUGS (6)
  1. CYCLOPHOSPHAMIDE [Suspect]
     Dosage: 1680 MG
     Dates: end: 20090318
  2. CYTARABINE [Suspect]
     Dosage: 1016 MG
     Dates: end: 20090328
  3. MERCAPTOPURINE [Suspect]
     Dosage: 1400 MG
     Dates: end: 20090331
  4. METHOTREXATE [Suspect]
     Dosage: 48 MG
     Dates: end: 20090311
  5. ONCASPAR [Suspect]
     Dosage: 4325 IU
     Dates: end: 20090401
  6. VINCRISTINE SULFATE [Suspect]
     Dosage: 5.2 MG
     Dates: end: 20090408

REACTIONS (2)
  - HYPERGLYCAEMIA [None]
  - SEPTIC SHOCK [None]
